FAERS Safety Report 10049045 (Version 1)
Quarter: 2014Q1

REPORT INFORMATION
  Report Type: Spontaneous
  Country: US (occurrence: US)
  Receive Date: 20140331
  Receipt Date: 20140331
  Transmission Date: 20141002
  Serious: Yes (Other)
  Sender: FDA-Public Use
  Company Number: US-JNJFOC-20140311005

PATIENT
  Age: 58 Year
  Sex: Male
  Weight: 100.34 kg

DRUGS (9)
  1. SUDAFED [Suspect]
     Indication: NASOPHARYNGITIS
     Route: 048
     Dates: start: 20131212, end: 20131219
  2. SUDAFED [Suspect]
     Indication: NASOPHARYNGITIS
     Route: 048
     Dates: start: 1993, end: 20131211
  3. SUDAFED [Suspect]
     Indication: SEASONAL ALLERGY
     Route: 048
     Dates: start: 20131212, end: 20131219
  4. SUDAFED [Suspect]
     Indication: SEASONAL ALLERGY
     Route: 048
     Dates: start: 1993, end: 20131211
  5. TOFACITINIB CITRATE [Concomitant]
     Indication: PSORIASIS
     Route: 061
     Dates: start: 20131009, end: 20131229
  6. TOFACITINIB CITRATE [Concomitant]
     Indication: PSORIASIS
     Route: 061
     Dates: start: 20131009, end: 20131229
  7. FLUOXETINE [Concomitant]
     Indication: OBSESSIVE-COMPULSIVE DISORDER
     Route: 048
     Dates: start: 200507
  8. ANDROGEL [Concomitant]
     Indication: BLOOD TESTOSTERONE DECREASED
     Route: 061
     Dates: start: 2010
  9. VYTORIN [Concomitant]
     Indication: HYPERCHOLESTEROLAEMIA
     Dosage: 10/40
     Route: 048
     Dates: start: 200102

REACTIONS (1)
  - Atrial fibrillation [Recovered/Resolved]
